FAERS Safety Report 4815912-4 (Version None)
Quarter: 2005Q4

REPORT INFORMATION
  Report Type: 
  Country: None (occurrence: None)
  Receive Date: 20051026
  Receipt Date: 20051011
  Transmission Date: 20060501
  Serious: Yes (Death)
  Sender: FDA-Public Use
  Company Number: US_0510122914

PATIENT
  Age: 20 Year
  Sex: Female

DRUGS (5)
  1. CYMBALTA [Suspect]
     Indication: BULIMIA NERVOSA
     Dosage: 60 MG IN THE MORNING
     Dates: start: 20050427
  2. LEXAPRO [Concomitant]
  3. WELLBUTRIN [Concomitant]
  4. TOPAMAX [Concomitant]
  5. SEROQUEL [Concomitant]

REACTIONS (1)
  - DEATH [None]
